FAERS Safety Report 6638897-7 (Version None)
Quarter: 2010Q1

REPORT INFORMATION
  Report Type: 
  Country: None (occurrence: None)
  Receive Date: 20100316
  Receipt Date: 20100316
  Transmission Date: 20100710
  Serious: Yes (Hospitalization)
  Sender: FDA-Public Use
  Company Number: None

PATIENT
  Age: 82 Year
  Sex: Male
  Weight: 106.5953 kg

DRUGS (8)
  1. DOCETAXEL [Suspect]
     Indication: PROSTATE CANCER
     Dosage: 75 MG/M2 Q3W IV
     Route: 042
     Dates: start: 20100222, end: 20100222
  2. REVLIMID [Suspect]
     Indication: PROSTATE CANCER
     Dosage: 25 MG QD DAY 1-14 PO
     Route: 048
     Dates: start: 20100222, end: 20100302
  3. NEXIUM [Concomitant]
  4. LEVAQUIN [Concomitant]
  5. HYDROCHLOROTHIAZIDE [Concomitant]
  6. DETROL [Concomitant]
  7. HYDRATE WITH D5 1/2 NORMAL SALINE [Concomitant]
  8. NEUPOGEN [Concomitant]

REACTIONS (8)
  - ASTHENIA [None]
  - BLOOD CREATININE INCREASED [None]
  - DEHYDRATION [None]
  - DIARRHOEA [None]
  - NAUSEA [None]
  - NEUTROPENIA [None]
  - REFUSAL OF TREATMENT BY PATIENT [None]
  - VOMITING [None]
